FAERS Safety Report 3724657 (Version 10)
Quarter: 2013Q1

REPORT INFORMATION
  Report Type: Report from Study
  Country: AU (occurrence: AU)
  Receive Date: 20011023
  Receipt Date: 20130314
  Transmission Date: 20140127
  Serious: Yes (Other)
  Sender: FDA-Public Use
  Company Number: PHBS2001AU10052

PATIENT
  Age: 40 Year
  Sex: Male

DRUGS (17)
  1. CLOZARIL [Suspect]
     Indication: SCHIZOPHRENIA, PARANOID TYPE
     Dosage: 500 MG, QD
     Route: 048
     Dates: start: 19960229, end: 200110
  2. CLOZARIL [Suspect]
     Dosage: 500 MG, UNK
  3. CHLORPROMAZINE [Concomitant]
     Dosage: 200 MG, QID
     Route: 048
  4. CHLORPROMAZINE [Concomitant]
     Dosage: 200 MG, TID
  5. QUETIAPINE [Concomitant]
     Dosage: 800 MG IN NOCTE AND 200 MG IN MANE
     Route: 048
  6. BENZHEXOL [Concomitant]
     Dosage: 5 MG, IN NOCTE
     Route: 048
  7. VALPROATE SODIUM [Concomitant]
     Dosage: 1500 MG, BID
     Route: 048
  8. PERINDOPRIL [Concomitant]
     Dosage: 5 MG, MANE
     Route: 048
  9. PRAZOSIN [Concomitant]
     Dosage: 2 MG, BID
     Route: 048
  10. OMEPRAZOLE [Concomitant]
     Dosage: 20 MG, BID
     Route: 048
  11. ZUCLOPENTHIXOL [Concomitant]
     Dosage: 300 MG, WEEKLY
     Route: 030
  12. ASPIRIN [Concomitant]
     Dosage: UNK
  13. METAMUCIL [Concomitant]
     Dosage: UNK
  14. PARACETAMOL [Concomitant]
     Dosage: 1000 MG, BID
  15. FISH OIL [Concomitant]
     Dosage: 1500 MG, BID
  16. METOPROLOL [Concomitant]
     Dosage: 25 MG, BID
  17. ATORVASTATIN [Concomitant]
     Dosage: 40 MG, NOCTE

REACTIONS (22)
  - Cardiac failure [Unknown]
  - Coronary artery disease [Unknown]
  - Pulmonary valve incompetence [Unknown]
  - Tricuspid valve incompetence [Unknown]
  - Hypoperfusion [Unknown]
  - Mitral valve incompetence [Unknown]
  - Withdrawal syndrome [Unknown]
  - Myocardial ischaemia [Unknown]
  - Congestive cardiomyopathy [Not Recovered/Not Resolved]
  - Dilatation ventricular [Unknown]
  - Ventricular hypokinesia [Unknown]
  - Fatigue [Unknown]
  - Dyspnoea [Unknown]
  - Chest pain [Unknown]
  - Ejection fraction decreased [Unknown]
  - Systolic dysfunction [Unknown]
  - Persecutory delusion [Not Recovered/Not Resolved]
  - Somatic delusion [Not Recovered/Not Resolved]
  - Psychotic disorder [Unknown]
  - Sinus tachycardia [Unknown]
  - Electrocardiogram QT prolonged [Unknown]
  - Limb discomfort [Unknown]
